FAERS Safety Report 17219644 (Version 1)
Quarter: 2019Q4

REPORT INFORMATION
  Report Type: Report from Study
  Country: IT (occurrence: IT)
  Receive Date: 20191231
  Receipt Date: 20191231
  Transmission Date: 20200122
  Serious: Yes (Other)
  Sender: FDA-Public Use
  Company Number: IT-MYLANLABS-2019M1130875

PATIENT
  Sex: Female

DRUGS (6)
  1. RAMUCIRUMAB [Suspect]
     Active Substance: RAMUCIRUMAB
     Dosage: 350 MG, UNKNOWN
     Route: 042
     Dates: start: 20190619
  2. PACLITAXEL. [Suspect]
     Active Substance: PACLITAXEL
     Dosage: 85.5 MG, UNKNOWN
     Route: 042
     Dates: start: 20190515, end: 20190529
  3. PACLITAXEL. [Suspect]
     Active Substance: PACLITAXEL
     Indication: GASTRIC CANCER
     Dosage: 70 MG, UNKNOWN
     Route: 042
     Dates: start: 20190619
  4. PACLITAXEL. [Suspect]
     Active Substance: PACLITAXEL
     Dosage: 110 MG, UNKNOWN
     Route: 042
     Dates: start: 20190415, end: 20190429
  5. RAMUCIRUMAB [Suspect]
     Active Substance: RAMUCIRUMAB
     Indication: GASTRIC CANCER
     Dosage: 384 MG, UNKNOWN
     Route: 042
     Dates: start: 20190429
  6. RAMUCIRUMAB [Suspect]
     Active Substance: RAMUCIRUMAB
     Dosage: 380 MG, UNKNOWN
     Route: 042
     Dates: start: 20190415

REACTIONS (3)
  - Leukopenia [Not Recovered/Not Resolved]
  - Haemorrhoidal haemorrhage [Recovered/Resolved]
  - Pyrexia [Recovered/Resolved]

NARRATIVE: CASE EVENT DATE: 20190416
